FAERS Safety Report 4442618-6 (Version None)
Quarter: 2004Q3

REPORT INFORMATION
  Report Type: 
  Country: None (occurrence: None)
  Receive Date: 20040903
  Receipt Date: 20040721
  Transmission Date: 20050211
  Serious: Yes (Other)
  Sender: FDA-Public Use
  Company Number: 2004UW15313

PATIENT
  Age: 60 Year
  Sex: Male

DRUGS (10)
  1. CRESTOR [Suspect]
     Indication: HIGH DENSITY LIPOPROTEIN DECREASED
     Dosage: 10 MG PO
     Route: 048
     Dates: start: 20040719
  2. LANTUS [Concomitant]
  3. NOVOLOG [Concomitant]
  4. METFORMIN HCL [Concomitant]
  5. HYZAAR [Concomitant]
  6. ISOSORBIDE MONONITRATE [Concomitant]
  7. LOTREL [Concomitant]
  8. TOPROL-XL [Concomitant]
  9. ASPIRIN [Concomitant]
  10. MULTIVITAMIN [Concomitant]

REACTIONS (4)
  - ABDOMINAL DISTENSION [None]
  - COUGH [None]
  - FEELING ABNORMAL [None]
  - PAIN [None]
